FAERS Safety Report 4636155-3 (Version None)
Quarter: 2005Q2

REPORT INFORMATION
  Report Type: 
  Country: None (occurrence: None)
  Receive Date: 20050415
  Receipt Date: 20050404
  Transmission Date: 20051028
  Serious: Yes (Hospitalization)
  Sender: FDA-Public Use
  Company Number: US-BRISTOL-MYERS SQUIBB COMPANY-12920815

PATIENT
  Age: 41 Year
  Sex: Female
  Weight: 54 kg

DRUGS (2)
  1. COUMADIN [Suspect]
     Indication: HEART VALVE REPLACEMENT
  2. LUPRON DEPOT-3 [Suspect]
     Indication: MENORRHAGIA
     Route: 030
     Dates: start: 20040901

REACTIONS (3)
  - APHASIA [None]
  - HAEMORRHAGIC STROKE [None]
  - HEMIPARESIS [None]
